FAERS Safety Report 7320847-1 (Version None)
Quarter: 2011Q1

REPORT INFORMATION
  Report Type: 
  Country: None (occurrence: None)
  Receive Date: 20110228
  Receipt Date: 20110217
  Transmission Date: 20110831
  Serious: Yes (Other)
  Sender: FDA-Public Use
  Company Number: NL-ROCHE-760873

PATIENT
  Sex: Male

DRUGS (1)
  1. ROACTEMRA [Suspect]
     Route: 042

REACTIONS (3)
  - ABORTION SPONTANEOUS [None]
  - DRUG EXPOSURE DURING PREGNANCY [None]
  - NO ADVERSE EVENT [None]
